FAERS Safety Report 9989174 (Version 1)
Quarter: 2013Q4

REPORT INFORMATION
  Report Type: Spontaneous
  Country: GB (occurrence: None)
  Receive Date: 20131022
  Receipt Date: 20131022
  Transmission Date: 20140711
  Serious: Yes (Disabling, Other)
  Sender: FDA-Public Use
  Company Number: 2013GR_BP001710

PATIENT
  Age: 64 Year
  Sex: Male

DRUGS (4)
  1. FINASTERIDE (FINASTERIDE) [Suspect]
     Indication: PRODUCT USED FOR UNKNOWN INDICATION
     Dates: start: 20130130
  2. DICLOFENAC SODIUM [Suspect]
     Indication: BACK PAIN
     Dosage: (50 MG, THRICE DAILY)?
     Dates: start: 20121220
  3. OMEPRAZOLE [Concomitant]
  4. PROCHLORPERAZINE [Concomitant]

REACTIONS (2)
  - Back pain [None]
  - Drug interaction [None]
